FAERS Safety Report 4524193-0 (Version None)
Quarter: 2004Q4

REPORT INFORMATION
  Report Type: 
  Country: None (occurrence: None)
  Receive Date: 20041119
  Receipt Date: 20041020
  Transmission Date: 20050328
  Serious: No
  Sender: FDA-Public Use
  Company Number: PHEH2004US11268

PATIENT
  Age: 31 Year
  Sex: Female

DRUGS (7)
  1. ZELNORM [Suspect]
     Indication: CONSTIPATION
     Dosage: 6 MG, BID, ORAL
     Route: 048
     Dates: start: 20041014
  2. LANTUS [Concomitant]
  3. METFORMIN HCL [Concomitant]
  4. NEXIUM [Concomitant]
  5. CARAFATE [Concomitant]
  6. PROPRANOLOL [Concomitant]
  7. PRINIVIL [Concomitant]

REACTIONS (1)
  - HEPATIC ENZYME INCREASED [None]
